FAERS Safety Report 24389723 (Version 1)
Quarter: 2024Q4

REPORT INFORMATION
  Report Type: Report from Study
  Country: US (occurrence: US)
  Receive Date: 20241003
  Receipt Date: 20241003
  Transmission Date: 20250115
  Serious: Yes (Hospitalization)
  Sender: JAZZ
  Company Number: US-JAZZ PHARMACEUTICALS-2024-US-016671

PATIENT
  Sex: Male

DRUGS (1)
  1. EPIDIOLEX [Suspect]
     Active Substance: CANNABIDIOL
     Indication: Epilepsy
     Dosage: GIVE 0.25 ML BID FOR 7 DAYS, 0.5ML BID FOR 7 DAYS, 0.75ML BID FOR 7 DAYS, THEN 0.9 ML BID THEREAFTER
     Route: 048
     Dates: start: 202409

REACTIONS (1)
  - Hospitalisation [Unknown]
